FAERS Safety Report 4307987-6 (Version None)
Quarter: 2004Q1

REPORT INFORMATION
  Report Type: 
  Country: None (occurrence: None)
  Receive Date: 20040301
  Receipt Date: 20040224
  Transmission Date: 20041129
  Serious: No
  Sender: FDA-Public Use
  Company Number: US-BRISTOL-MYERS SQUIBB COMPANY-12193280

PATIENT
  Sex: Female

DRUGS (1)
  1. GLUCOPHAGE [Suspect]

REACTIONS (1)
  - DIABETES MELLITUS INADEQUATE CONTROL [None]
